FAERS Safety Report 6465025-3 (Version None)
Quarter: 2009Q4

REPORT INFORMATION
  Report Type: 
  Country: None (occurrence: None)
  Receive Date: 20091123
  Receipt Date: 20091116
  Transmission Date: 20100525
  Serious: Yes (Life-Threatening)
  Sender: FDA-Public Use
  Company Number: 2009-04807

PATIENT
  Sex: Male

DRUGS (6)
  1. VELCADE [Suspect]
     Indication: MULTIPLE MYELOMA
     Dates: start: 20080618, end: 20081005
  2. DOXORUBICIN [Concomitant]
  3. VINCRISTINE [Concomitant]
  4. ALLOPURINOL [Concomitant]
  5. GELUSIL    (MAGNESIUM HYDROXIDE, ALUMINIUM HYDROXIDE, SIMETICONE) [Concomitant]
  6. DOMPERIDONE    (DOMPERIDONE) [Concomitant]

REACTIONS (5)
  - COUGH [None]
  - DIARRHOEA [None]
  - FEBRILE NEUTROPENIA [None]
  - NAUSEA [None]
  - NEUROPATHY PERIPHERAL [None]
